FAERS Safety Report 8508310-3 (Version None)
Quarter: 2012Q3

REPORT INFORMATION
  Report Type: 
  Country: None (occurrence: None)
  Receive Date: 20120713
  Receipt Date: 20120705
  Transmission Date: 20120928
  Serious: Yes (Hospitalization)
  Sender: FDA-Public Use
  Company Number: US-ABBOTT-12P-163-0953495-00

PATIENT
  Age: 64 Year
  Sex: Female

DRUGS (7)
  1. ZOCOR [Concomitant]
     Indication: BLOOD CHOLESTEROL
  2. JANUVIA [Concomitant]
     Indication: DIABETES MELLITUS
  3. MIRAPEX [Concomitant]
     Indication: MUSCLE DISORDER
  4. WARFARIN SODIUM [Concomitant]
     Indication: PROPHYLAXIS
  5. PREMARIN [Concomitant]
     Indication: PRODUCT USED FOR UNKNOWN INDICATION
  6. METHOTREXATE [Concomitant]
     Indication: RHEUMATOID ARTHRITIS
     Dosage: 6-2.5MG TABLETS EVERY WEEK
  7. HUMIRA [Suspect]
     Indication: RHEUMATOID ARTHRITIS
     Dates: start: 20110501

REACTIONS (1)
  - CARDIAC DISORDER [None]
